FAERS Safety Report 7001715-1 (Version None)
Quarter: 2010Q3

REPORT INFORMATION
  Report Type: 
  Country: None (occurrence: None)
  Receive Date: 20100920
  Receipt Date: 20100908
  Transmission Date: 20110219
  Serious: Yes (Death)
  Sender: FDA-Public Use
  Company Number: US-SANOFI-AVENTIS-2010SA054835

PATIENT
  Sex: Female

DRUGS (11)
  1. PLAVIX [Suspect]
     Indication: PRODUCT USED FOR UNKNOWN INDICATION
     Route: 048
  2. XANAX [Concomitant]
  3. VAGIFEM [Concomitant]
     Route: 067
  4. TRIAMTERENE [Concomitant]
  5. LASIX [Concomitant]
  6. HUMALIN [Concomitant]
     Dosage: DOSE:60 UNIT(S)
     Route: 065
  7. RESTORIL [Concomitant]
  8. ASPIRIN [Concomitant]
  9. SIMVASTATIN [Concomitant]
  10. ELAVIL [Concomitant]
  11. ADVAIR DISKUS 100/50 [Concomitant]

REACTIONS (1)
  - DEATH [None]
